FAERS Safety Report 4924539-5 (Version None)
Quarter: 2006Q1

REPORT INFORMATION
  Report Type: 
  Country: None (occurrence: None)
  Receive Date: 20060222
  Receipt Date: 20060208
  Transmission Date: 20060701
  Serious: Yes (Hospitalization)
  Sender: FDA-Public Use
  Company Number: 2006-02-0267

PATIENT
  Age: 10 Year
  Sex: Male
  Weight: 44 kg

DRUGS (9)
  1. BETAMETHASONE [Suspect]
     Indication: ASTHENIA
     Dosage: ORAL
     Route: 048
     Dates: start: 20051122, end: 20051129
  2. BETAMETHASONE [Suspect]
     Indication: COUGH
     Dosage: ORAL
     Route: 048
     Dates: start: 20051122, end: 20051129
  3. BETAMETHASONE [Suspect]
     Indication: PYREXIA
     Dosage: ORAL
     Route: 048
     Dates: start: 20051122, end: 20051129
  4. CLAMOXYL ORAL [Suspect]
     Indication: ASTHENIA
     Dosage: ORAL
     Route: 048
     Dates: start: 20051122, end: 20051129
  5. CLAMOXYL ORAL [Suspect]
     Indication: COUGH
     Dosage: ORAL
     Route: 048
     Dates: start: 20051122, end: 20051129
  6. CLAMOXYL ORAL [Suspect]
     Indication: PYREXIA
     Dosage: ORAL
     Route: 048
     Dates: start: 20051122, end: 20051129
  7. DEXTROMETHORPHAN HYDROBROMIDE SYRUP [Suspect]
     Indication: ASTHENIA
     Dosage: ORAL
     Route: 048
     Dates: end: 20051129
  8. DEXTROMETHORPHAN HYDROBROMIDE SYRUP [Suspect]
     Indication: COUGH
     Dosage: ORAL
     Route: 048
     Dates: end: 20051129
  9. DEXTROMETHORPHAN HYDROBROMIDE SYRUP [Suspect]
     Indication: PYREXIA
     Dosage: ORAL
     Route: 048
     Dates: end: 20051129

REACTIONS (2)
  - DERMATITIS BULLOUS [None]
  - STEVENS-JOHNSON SYNDROME [None]
